FAERS Safety Report 20009617 (Version 1)
Quarter: 2021Q4

REPORT INFORMATION
  Report Type: Spontaneous
  Country: US (occurrence: US)
  Receive Date: 20211028
  Receipt Date: 20211028
  Transmission Date: 20220303
  Serious: Yes (Death, Life-Threatening, Hospitalization)
  Sender: FDA-Public Use
  Company Number: None

PATIENT
  Age: 62 Year
  Sex: Female
  Weight: 83.25 kg

DRUGS (1)
  1. HARVONI [Suspect]
     Active Substance: LEDIPASVIR\SOFOSBUVIR
     Indication: Hepatitis C
     Dosage: ?          QUANTITY:1 TABLET(S);
     Route: 048
     Dates: start: 20140901, end: 20150701

REACTIONS (5)
  - Hepatic cancer [None]
  - Anaemia [None]
  - Portal hypertensive gastropathy [None]
  - Varices oesophageal [None]
  - Hepatitis C [None]

NARRATIVE: CASE EVENT DATE: 20210714
